FAERS Safety Report 17712862 (Version 1)
Quarter: 2020Q2

REPORT INFORMATION
  Report Type: Spontaneous
  Country: US (occurrence: US)
  Receive Date: 20200427
  Receipt Date: 20200427
  Transmission Date: 20200714
  Serious: Yes (Other)
  Sender: FDA-Public Use
  Company Number: US-SA-2019SA282852

PATIENT
  Age: 25 Year
  Sex: Female

DRUGS (7)
  1. ZYRETIC [Concomitant]
  2. CLARITIN-D NOS [Concomitant]
     Active Substance: LORATADINE\PSEUDOEPHEDRINE SULFATE
  3. TRIAMCINOLONE ACETONIDE. [Concomitant]
     Active Substance: TRIAMCINOLONE ACETONIDE
  4. LEVORA-28 [Concomitant]
  5. MUPIROCIN. [Concomitant]
     Active Substance: MUPIROCIN
  6. HYDROXYZINE HCL [Concomitant]
     Active Substance: HYDROXYZINE HYDROCHLORIDE
  7. DUPIXENT [Suspect]
     Active Substance: DUPILUMAB
     Indication: DERMATITIS ATOPIC
     Dosage: 300 MG, QOW
     Route: 058
     Dates: start: 20191101

REACTIONS (14)
  - Rash [Unknown]
  - Eye pain [Unknown]
  - Vision blurred [Unknown]
  - Staphylococcal infection [Unknown]
  - Eczema [Unknown]
  - Skin exfoliation [Unknown]
  - Dry skin [Unknown]
  - Eye swelling [Unknown]
  - Purulent discharge [Unknown]
  - Lacrimation increased [Unknown]
  - Swelling face [Unknown]
  - Periorbital swelling [Unknown]
  - Erythema [Unknown]
  - Eye pruritus [Unknown]
